FAERS Safety Report 8116383-5 (Version None)
Quarter: 2012Q1

REPORT INFORMATION
  Report Type: 
  Country: None (occurrence: None)
  Receive Date: 20120206
  Receipt Date: 20120126
  Transmission Date: 20120608
  Serious: Yes (Other)
  Sender: FDA-Public Use
  Company Number: HR-GLAXOSMITHKLINE-B0778179A

PATIENT
  Age: 55 Year
  Sex: Female

DRUGS (1)
  1. HYCAMTIN [Suspect]
     Indication: OVARIAN CANCER
     Route: 065

REACTIONS (11)
  - HYPERSENSITIVITY [None]
  - EYE SWELLING [None]
  - BLINDNESS [None]
  - FACE OEDEMA [None]
  - LOCALISED OEDEMA [None]
  - ERYTHEMA [None]
  - URTICARIA [None]
  - SCAB [None]
  - RASH [None]
  - SKIN OEDEMA [None]
  - LYMPHOEDEMA [None]
